FAERS Safety Report 21956998 (Version 1)
Quarter: 2023Q1

REPORT INFORMATION
  Report Type: Spontaneous
  Country: US (occurrence: None)
  Receive Date: 20230203
  Receipt Date: 20230203
  Transmission Date: 20230418
  Serious: Yes (Disabling)
  Sender: FDA-Public Use
  Company Number: None

PATIENT
  Age: 53 Year
  Sex: Female
  Weight: 58.5 kg

DRUGS (4)
  1. ARTIFICIAL TEARS LUBRICANT EYE DROPS (CARBOXYMETHYLCELLULOSE SODIUM) [Suspect]
     Active Substance: CARBOXYMETHYLCELLULOSE SODIUM
     Indication: Ocular hyperaemia
     Dosage: FREQUENCY : EVERY 4 HOURS;?
     Route: 047
     Dates: start: 20221115, end: 20230202
  2. LUMIFY [Suspect]
     Active Substance: BRIMONIDINE TARTRATE
  3. SYSTANE (HYPROMELLOSE 2910 (4000 MPA.S)) [Suspect]
     Active Substance: HYPROMELLOSE 2910 (4000 MPA.S)
  4. ARTIFICIAL TEARS LUBRICANT EYE DROPS (CARBOXYMETHYLCELLULOSE SODIUM) [Suspect]
     Active Substance: CARBOXYMETHYLCELLULOSE SODIUM
     Indication: Dry eye

REACTIONS (10)
  - Ocular hyperaemia [None]
  - Lacrimation increased [None]
  - Eyelid margin crusting [None]
  - Eye discharge [None]
  - Visual impairment [None]
  - Headache [None]
  - Anxiety [None]
  - Memory impairment [None]
  - Nervousness [None]
  - Drug ineffective [None]

NARRATIVE: CASE EVENT DATE: 20221115
